APPROVED DRUG PRODUCT: PROPRANOLOL HYDROCHLORIDE
Active Ingredient: PROPRANOLOL HYDROCHLORIDE
Strength: 80MG
Dosage Form/Route: CAPSULE, EXTENDED RELEASE;ORAL
Application: A204349 | Product #002
Applicant: LUPIN LTD
Approved: Jan 12, 2024 | RLD: No | RS: No | Type: DISCN